FAERS Safety Report 6766270-X (Version None)
Quarter: 2010Q2

REPORT INFORMATION
  Report Type: 
  Country: None (occurrence: None)
  Receive Date: 20100611
  Receipt Date: 20100601
  Transmission Date: 20101027
  Serious: Yes (Hospitalization, Other)
  Sender: FDA-Public Use
  Company Number: FR-JNJFOC-20100600097

PATIENT
  Age: 47 Year
  Sex: Female
  Weight: 86 kg

DRUGS (4)
  1. REMICADE [Suspect]
     Indication: CROHN'S DISEASE
     Route: 042
  2. AZATHIOPRINE [Suspect]
     Indication: CROHN'S DISEASE
  3. PREDNISOLONE [Concomitant]
     Indication: CROHN'S DISEASE
  4. PENTASA [Concomitant]
     Indication: CROHN'S DISEASE

REACTIONS (4)
  - CERVIX CARCINOMA [None]
  - DEHYDRATION [None]
  - DIARRHOEA [None]
  - UTERINE CANCER [None]
